FAERS Safety Report 9628107 (Version 2)
Quarter: 2014Q1

REPORT INFORMATION
  Report Type: Spontaneous
  Country: US (occurrence: US)
  Receive Date: 20131017
  Receipt Date: 20140304
  Transmission Date: 20141002
  Serious: No
  Sender: FDA-Public Use
  Company Number: US-B.I. PHARMACEUTICALS,INC./RIDGEFIELD-2013-BI-31463BP

PATIENT
  Age: 74 Year
  Sex: Female

DRUGS (2)
  1. SPIRIVA [Suspect]
     Indication: CHRONIC OBSTRUCTIVE PULMONARY DISEASE
     Dosage: 18 MCG
     Route: 055
     Dates: start: 201308
  2. NEXIUM [Concomitant]
     Indication: ABDOMINAL DISCOMFORT
     Route: 048

REACTIONS (2)
  - Nasopharyngitis [Unknown]
  - Drug ineffective [Not Recovered/Not Resolved]
